FAERS Safety Report 8099711-9 (Version None)
Quarter: 2012Q1

REPORT INFORMATION
  Report Type: 
  Country: None (occurrence: None)
  Receive Date: 20120129
  Receipt Date: 20110907
  Transmission Date: 20120608
  Serious: No
  Sender: FDA-Public Use
  Company Number: US-ABBOTT-11P-163-0852078-00

PATIENT
  Sex: Female

DRUGS (16)
  1. IC TIMOLOL EYE DROPS [Concomitant]
     Indication: SCLERITIS
  2. LEVEMIR [Concomitant]
     Indication: DIABETES MELLITUS
  3. PREDNISONE TAB [Concomitant]
     Indication: RHEUMATOID ARTHRITIS
  4. HUMALOG [Concomitant]
     Indication: DIABETES MELLITUS
  5. FOLIC ACID [Concomitant]
     Indication: VITAMIN SUPPLEMENTATION
  6. PLAQUENIL [Concomitant]
     Indication: RHEUMATOID ARTHRITIS
  7. AMBIEN [Concomitant]
     Indication: SLEEP DISORDER THERAPY
  8. PROBIOTICS [Concomitant]
     Indication: SUPPLEMENTATION THERAPY
  9. CITRACAL [Concomitant]
     Indication: SUPPLEMENTATION THERAPY
  10. HUMIRA [Suspect]
     Indication: RHEUMATOID ARTHRITIS
     Dates: start: 20100101
  11. VITAMIN D [Concomitant]
     Indication: VITAMIN SUPPLEMENTATION
  12. METHOTREXATE [Concomitant]
     Indication: RHEUMATOID ARTHRITIS
  13. TAMOXIFEN CITRATE [Concomitant]
     Indication: BREAST CANCER
  14. LOVAZA [Concomitant]
     Indication: SUPPLEMENTATION THERAPY
  15. TERAZOLE [Concomitant]
     Indication: SCLERITIS
  16. VIT C [Concomitant]
     Indication: VITAMIN SUPPLEMENTATION

REACTIONS (2)
  - INJECTION SITE PAIN [None]
  - CONTUSION [None]
